FAERS Safety Report 8041811 (Version 4)
Quarter: 2021Q2

REPORT INFORMATION
  Report Type: Spontaneous
  Country: JP (occurrence: JP)
  Receive Date: 20110718
  Receipt Date: 20210618
  Transmission Date: 20210717
  Serious: Yes (Life-Threatening, Other)
  Sender: FDA-Public Use
  Company Number: JP-ASTELLAS-2011JP004714

PATIENT
  Age: 62 Year
  Sex: Female
  Weight: 46 kg

DRUGS (22)
  1. FUNGUARD [Suspect]
     Active Substance: MICAFUNGIN SODIUM
     Indication: FEBRILE NEUTROPENIA
     Route: 041
     Dates: start: 20101013, end: 20101229
  2. MAXIPIME [Concomitant]
     Active Substance: CEFEPIME HYDROCHLORIDE
     Indication: FEBRILE NEUTROPENIA
     Route: 042
     Dates: start: 20100928, end: 20101005
  3. TARGOCID [Concomitant]
     Active Substance: TEICOPLANIN
     Route: 041
     Dates: start: 20110204, end: 20110216
  4. ISEPACIN [Concomitant]
     Indication: PRODUCT USED FOR UNKNOWN INDICATION
     Dosage: UNK UNK, UNKNOWN FREQ.
     Route: 065
     Dates: start: 20110221, end: 20110307
  5. FUNGUARD [Suspect]
     Active Substance: MICAFUNGIN SODIUM
     Route: 041
     Dates: start: 20110208, end: 20110211
  6. DECADRON [Concomitant]
     Active Substance: DEXAMETHASONE
     Indication: B-CELL LYMPHOMA
     Route: 041
     Dates: start: 20100929, end: 20101011
  7. PRODIF [Concomitant]
     Active Substance: FOSFLUCONAZOLE
     Indication: FEBRILE NEUTROPENIA
     Route: 042
     Dates: start: 20100930, end: 20101015
  8. ZOSYN [Concomitant]
     Active Substance: PIPERACILLIN SODIUM\TAZOBACTAM SODIUM
     Indication: FEBRILE NEUTROPENIA
     Route: 042
     Dates: start: 20101005, end: 20101013
  9. CIPROXAN [Concomitant]
     Active Substance: CIPROFLOXACIN
     Indication: FEBRILE NEUTROPENIA
     Route: 041
     Dates: start: 20101104, end: 20101129
  10. ZOSYN [Concomitant]
     Active Substance: PIPERACILLIN SODIUM\TAZOBACTAM SODIUM
     Route: 042
     Dates: start: 20101129, end: 20110131
  11. MEROPENEM. [Concomitant]
     Active Substance: MEROPENEM
     Dosage: 0.5 G, THRICE DAILY
     Route: 041
     Dates: start: 20110204, end: 20110210
  12. TARGOCID [Concomitant]
     Active Substance: TEICOPLANIN
     Indication: FEBRILE NEUTROPENIA
     Route: 041
     Dates: start: 20101129, end: 20101201
  13. ZOSYN [Concomitant]
     Active Substance: PIPERACILLIN SODIUM\TAZOBACTAM SODIUM
     Route: 042
     Dates: start: 20110211, end: 20110322
  14. MEROPENEM. [Concomitant]
     Active Substance: MEROPENEM
     Indication: FEBRILE NEUTROPENIA
     Dosage: 0.5 G, THRICE DAILY
     Route: 041
     Dates: start: 20101013, end: 20101104
  15. VANCOMYCIN [Concomitant]
     Active Substance: VANCOMYCIN
     Indication: PRODUCT USED FOR UNKNOWN INDICATION
     Dosage: UNK UNK, UNKNOWN FREQ.
     Route: 065
     Dates: start: 20110218, end: 20110408
  16. PRODIF [Concomitant]
     Active Substance: FOSFLUCONAZOLE
     Indication: SEPSIS
     Route: 042
     Dates: start: 20110212, end: 20110415
  17. HABEKACIN [Concomitant]
     Active Substance: ARBEKACIN
     Indication: FEBRILE NEUTROPENIA
     Route: 042
     Dates: start: 20101026, end: 20101129
  18. AMPHOTERICIN B. [Concomitant]
     Active Substance: AMPHOTERICIN B
     Indication: SEPSIS
     Dosage: 225 MG/DAY, 5 MG/KG
     Route: 065
     Dates: start: 20110222, end: 20110411
  19. FUNGUARD [Suspect]
     Active Substance: MICAFUNGIN SODIUM
     Route: 041
     Dates: start: 20110114, end: 20110127
  20. RITUXAN [Concomitant]
     Active Substance: RITUXIMAB
     Indication: FOLLICULAR LYMPHOMA
     Dosage: UNK UNK, UNKNOWN FREQ.
     Route: 065
  21. DECADRON [Concomitant]
     Active Substance: DEXAMETHASONE
     Route: 041
     Dates: start: 20101015, end: 20101031
  22. TARGOCID [Concomitant]
     Active Substance: TEICOPLANIN
     Route: 041
     Dates: start: 20101202, end: 20110127

REACTIONS (3)
  - Fungaemia [Recovered/Resolved]
  - Trichosporon infection [Recovered/Resolved]
  - Systemic mycosis [Recovered/Resolved]

NARRATIVE: CASE EVENT DATE: 20110207
